FAERS Safety Report 18255879 (Version 2)
Quarter: 2020Q3

REPORT INFORMATION
  Report Type: Spontaneous
  Country: ES (occurrence: ES)
  Receive Date: 20200911
  Receipt Date: 20200916
  Transmission Date: 20201103
  Serious: Yes (Death, Other)
  Sender: FDA-Public Use
  Company Number: ES-AUROBINDO-AUR-APL-2013-04308

PATIENT
  Age: 49 Year
  Sex: Female

DRUGS (2)
  1. SIMVASTATIN. [Suspect]
     Active Substance: SIMVASTATIN
     Indication: PRODUCT USED FOR UNKNOWN INDICATION
     Dosage: 120 MILLIGRAM
     Route: 065
  2. COLCHICINE. [Interacting]
     Active Substance: COLCHICINE
     Indication: PRODUCT USED FOR UNKNOWN INDICATION
     Dosage: 20 MILLIGRAM
     Route: 065

REACTIONS (15)
  - Cardiac arrest [Fatal]
  - PCO2 decreased [Unknown]
  - Blood creatine phosphokinase increased [Unknown]
  - Blood pH decreased [Unknown]
  - Cyanosis [Unknown]
  - Aspartate aminotransferase increased [Unknown]
  - Coma scale abnormal [Unknown]
  - Oxygen saturation abnormal [Unknown]
  - Blood creatinine increased [Unknown]
  - Prothrombin time prolonged [Unknown]
  - Drug interaction [Unknown]
  - Toxicity to various agents [Unknown]
  - Blood pressure systolic decreased [Unknown]
  - Diarrhoea [Unknown]
  - Overdose [Unknown]
